FAERS Safety Report 20249309 (Version 1)
Quarter: 2021Q4

REPORT INFORMATION
  Report Type: Spontaneous
  Country: GB (occurrence: GB)
  Receive Date: 20211229
  Receipt Date: 20211229
  Transmission Date: 20220303
  Serious: Yes (Other)
  Sender: FDA-Public Use
  Company Number: None

PATIENT
  Age: 75 Year
  Sex: Male
  Weight: 104 kg

DRUGS (28)
  1. DOXYCYCLINE [Suspect]
     Active Substance: DOXYCYCLINE
     Dosage: TWO NOW THEN ONE DAILY, 50 MG
     Route: 048
     Dates: start: 20211207, end: 20211213
  2. DOXYCYCLINE [Suspect]
     Active Substance: DOXYCYCLINE
     Dosage: TWO NOW THEN ONE DAILY, 100 MG
     Route: 048
     Dates: start: 20211206, end: 20211207
  3. AMITRIPTYLINE HYDROCHLORIDE [Concomitant]
     Active Substance: AMITRIPTYLINE HYDROCHLORIDE
     Indication: Pain
     Dosage: 1 DOSAGE FORMS DAILY;  AT NIGHT TO HELP PAIN CO...
     Route: 048
     Dates: start: 20210604
  4. AMLODIPINE [Concomitant]
     Active Substance: AMLODIPINE BESYLATE
     Dosage: 1 DOSAGE FORMS DAILY; IN THE MORNING
     Route: 048
     Dates: start: 20210617
  5. ATORVASTATIN [Concomitant]
     Active Substance: ATORVASTATIN
     Indication: Blood cholesterol increased
     Dosage: 1 DOSAGE FORMS
     Route: 048
     Dates: start: 20210604
  6. BACLOFEN [Concomitant]
     Active Substance: BACLOFEN
     Dosage: 3 DOSAGE FORMS DAILY;
     Dates: start: 20210604
  7. BECONASE AQ [Concomitant]
     Active Substance: BECLOMETHASONE DIPROPIONATE MONOHYDRATE
     Dosage: ONE TO TWO SPRAYS IN TO EACH NOSTRIL TWICE A DAY
     Route: 045
     Dates: start: 20211004, end: 20211101
  8. BENZYDAMINE HYDROCHLORIDE [Concomitant]
     Active Substance: BENZYDAMINE HYDROCHLORIDE
     Dosage: USE BEFORE MEALS
     Dates: start: 20211203, end: 20211208
  9. CARBAMAZEPINE [Concomitant]
     Active Substance: CARBAMAZEPINE
     Dosage: 2 DOSAGE FORMS DAILY;
     Route: 048
     Dates: start: 20210604
  10. AMOXICILLIN\CLAVULANATE POTASSIUM [Concomitant]
     Active Substance: AMOXICILLIN\CLAVULANATE POTASSIUM
     Dosage: 2 DOSAGE FORMS DAILY;
     Route: 048
     Dates: start: 20211207, end: 20211214
  11. CODEINE PHOSPHATE [Concomitant]
     Active Substance: CODEINE PHOSPHATE
     Dosage: 3 DOSAGE FORMS DAILY;
     Dates: start: 20210604
  12. DALTEPARIN [Concomitant]
     Active Substance: DALTEPARIN
     Dosage: 20000 IU (INTERNATIONAL UNIT) DAILY;
     Route: 058
     Dates: start: 20210519
  13. EPHEDRINE HYDROCHLORIDE [Concomitant]
     Active Substance: EPHEDRINE HYDROCHLORIDE
     Dosage: 8 GTT DAILY; EACH NOSTRIL, MAXIMUM 7 DAYS USE
     Route: 045
     Dates: start: 20211126, end: 20211203
  14. EZETIMIBE [Concomitant]
     Active Substance: EZETIMIBE
     Dosage: 1 DOSAGE FORMS DAILY;
     Dates: start: 20210604
  15. FERROUS FUMARATE [Concomitant]
     Active Substance: FERROUS FUMARATE
     Dosage: 1 DOSAGE FORMS DAILY; AT LUNCHTIME
     Route: 048
     Dates: start: 20210604, end: 20210930
  16. FINASTERIDE [Concomitant]
     Active Substance: FINASTERIDE
     Dosage: 1 DOSAGE FORMS DAILY;
     Route: 048
     Dates: start: 20210604, end: 20210930
  17. FOLIC ACID [Concomitant]
     Active Substance: FOLIC ACID
     Dosage: EVERY DAY
     Dates: start: 20210730
  18. GABAPENTIN [Concomitant]
     Active Substance: GABAPENTIN
     Dosage: 3 DOSAGE FORMS DAILY;
     Route: 048
     Dates: start: 20210604, end: 20211125
  19. LANSOPRAZOLE [Concomitant]
     Active Substance: LANSOPRAZOLE
     Dosage: 1 DOSAGE FORMS DAILY;
     Route: 048
     Dates: start: 20210730
  20. POLYETHYLENE GLYCOLS [Concomitant]
     Active Substance: POLYETHYLENE GLYCOLS
     Dosage: AS DIRECTED
     Dates: start: 20210604
  21. NOVORAPID [Concomitant]
     Active Substance: INSULIN ASPART
     Dosage: TO BE ADMINISTERED IMMEDIATELY BEFORE OR SOON A...
     Dates: start: 20210604
  22. ACETAMINOPHEN [Concomitant]
     Active Substance: ACETAMINOPHEN
     Dosage: 8 DOSAGE FORMS DAILY;
     Route: 048
     Dates: start: 20210604
  23. PENICILLIN V [Concomitant]
     Active Substance: PENICILLIN V
     Dosage: 8 DOSAGE FORMS DAILY;
     Dates: start: 20211126, end: 20211201
  24. PIOGLITAZONE [Concomitant]
     Active Substance: PIOGLITAZONE
     Indication: Diabetes mellitus
     Dosage: 1 DOSAGE FORMS DAILY;
     Route: 048
     Dates: start: 20210730, end: 20210930
  25. RAMIPRIL [Concomitant]
     Active Substance: RAMIPRIL
     Dosage: 1 DOSAGE FORMS DAILY;
     Dates: start: 20210730
  26. SENNA [Concomitant]
     Active Substance: SENNA LEAF\SENNOSIDES\SENNOSIDES A AND B
     Dosage: 2 DOSAGE FORMS DAILY; T NIGHT WHEN NEEDED IF BOWELS N...
     Route: 048
     Dates: start: 20210604
  27. SODIUM BICARBONATE [Concomitant]
     Active Substance: SODIUM BICARBONATE
     Dosage: 4 DOSAGE FORMS DAILY;
     Route: 048
     Dates: start: 20210604
  28. TRESIBA [Concomitant]
     Active Substance: INSULIN DEGLUDEC
     Dosage: 1 DOSAGE FORMS DAILY; AT ANY TIME BUT A...
     Dates: start: 20210604

REACTIONS (5)
  - Hallucinations, mixed [Recovered/Resolved]
  - Dizziness [Recovered/Resolved]
  - Nausea [Recovered/Resolved]
  - Abdominal pain [Recovered/Resolved]
  - Tremor [Recovered/Resolved]
